FAERS Safety Report 8475520-3 (Version None)
Quarter: 2012Q2

REPORT INFORMATION
  Report Type: 
  Country: None (occurrence: None)
  Receive Date: 20120628
  Receipt Date: 20120619
  Transmission Date: 20120825
  Serious: Yes (Hospitalization)
  Sender: FDA-Public Use
  Company Number: JP-ROCHE-785720

PATIENT
  Sex: Male
  Weight: 15 kg

DRUGS (14)
  1. CYCLOSPORINE [Concomitant]
     Indication: JUVENILE ARTHRITIS
     Dosage: DOSE FORM: PERORAL AGENT
     Route: 048
  2. IBRUPROFEN [Concomitant]
     Indication: JUVENILE ARTHRITIS
     Route: 048
  3. PREDNISOLONE [Concomitant]
     Indication: JUVENILE ARTHRITIS
     Route: 048
  4. PREDNISOLONE [Concomitant]
     Route: 048
  5. IBRUPROFEN [Concomitant]
     Dosage: GRANULATED POWDER
     Route: 048
  6. METHOTREXATE [Concomitant]
     Route: 048
  7. METHOTREXATE [Concomitant]
     Route: 048
  8. PREDNISOLONE [Concomitant]
     Route: 048
     Dates: start: 20090410, end: 20091022
  9. METHOTREXATE [Concomitant]
     Indication: JUVENILE ARTHRITIS
     Route: 048
     Dates: start: 20090413, end: 20090706
  10. DEXAMETHASONE [Concomitant]
     Indication: JUVENILE ARTHRITIS
     Dosage: LIMETHASON
     Route: 041
     Dates: start: 20090413, end: 20090413
  11. CYCLOSPORINE [Concomitant]
     Route: 048
     Dates: start: 20090413, end: 20090904
  12. METHOTREXATE [Concomitant]
     Route: 048
  13. ACTEMRA [Suspect]
     Indication: JUVENILE ARTHRITIS
     Route: 041
  14. PREDNISOLONE [Concomitant]
     Route: 048

REACTIONS (2)
  - PYREXIA [None]
  - PARVOVIRUS INFECTION [None]
